FAERS Safety Report 6695656-7 (Version None)
Quarter: 2010Q2

REPORT INFORMATION
  Report Type: 
  Country: None (occurrence: None)
  Receive Date: 20100426
  Receipt Date: 20100414
  Transmission Date: 20101027
  Serious: No
  Sender: FDA-Public Use
  Company Number: US-BIOGENIDEC-2010BI012457

PATIENT
  Age: 48 Year
  Sex: Female

DRUGS (1)
  1. AVONEX [Suspect]
     Indication: MULTIPLE SCLEROSIS
     Route: 030
     Dates: start: 20071117

REACTIONS (5)
  - FEELING ABNORMAL [None]
  - HYPOPHAGIA [None]
  - LYMPHADENOPATHY [None]
  - NAUSEA [None]
  - PAIN IN JAW [None]
